FAERS Safety Report 11737843 (Version 1)
Quarter: 2015Q4

REPORT INFORMATION
  Report Type: Spontaneous
  Country: US (occurrence: None)
  Receive Date: 20151112
  Receipt Date: 20151112
  Transmission Date: 20160304
  Serious: Yes (Other)
  Sender: FDA-Public Use
  Company Number: None

PATIENT
  Age: 56 Year
  Sex: Female
  Weight: 73.94 kg

DRUGS (1)
  1. COLESTIPOL MICRONIZED 1GRAM [Suspect]
     Active Substance: COLESTIPOL
     Indication: BILE ACID MALABSORPTION
     Route: 048
     Dates: start: 20151104, end: 20151110

REACTIONS (5)
  - Spinal pain [None]
  - Neck pain [None]
  - Influenza like illness [None]
  - Myalgia [None]
  - Dysphagia [None]

NARRATIVE: CASE EVENT DATE: 20151104
